FAERS Safety Report 24626423 (Version 1)
Quarter: 2024Q4

REPORT INFORMATION
  Report Type: Spontaneous
  Country: AT (occurrence: AT)
  Receive Date: 20241115
  Receipt Date: 20241115
  Transmission Date: 20250114
  Serious: Yes (Other)
  Sender: DAIICHI
  Company Number: AT-DSJP-DS-2024-107801-AT

PATIENT
  Age: 63 Year
  Sex: Female
  Weight: 67 kg

DRUGS (8)
  1. EDOXABAN [Suspect]
     Active Substance: EDOXABAN
     Indication: Product used for unknown indication
     Dosage: 60 MG, QD (1-0-0)
     Route: 065
  2. EDOXABAN [Suspect]
     Active Substance: EDOXABAN
     Dosage: 30 MG, QD (1-0-0)
     Route: 065
  3. AMLODIPINE+ LISINOPRIL [Concomitant]
     Indication: Product used for unknown indication
     Dosage: 1 DOSAGE FORM, QD (5/2.5MG),1-0-0
     Route: 065
  4. DAPAGLIFLOZIN [Concomitant]
     Active Substance: DAPAGLIFLOZIN
     Indication: Product used for unknown indication
     Dosage: 10 MG, QD  (1-0-0)
     Route: 065
  5. ASPIRIN [Concomitant]
     Active Substance: ASPIRIN
     Indication: Product used for unknown indication
     Dosage: 100 MG
     Route: 065
  6. CLOPIDOGREL BESILATE [Concomitant]
     Active Substance: CLOPIDOGREL BESILATE
     Indication: Product used for unknown indication
     Dosage: 75 MG, FOR 1 WEEK
     Route: 065
  7. CLOPIDOGREL BESILATE [Concomitant]
     Active Substance: CLOPIDOGREL BESILATE
     Dosage: 75 MG, FOR 6 MONTHS
     Route: 065
  8. UNSPECIFIED INGREDIENT [Concomitant]
     Active Substance: UNSPECIFIED INGREDIENT
     Indication: Product used for unknown indication
     Dosage: UNK
     Route: 065

REACTIONS (4)
  - Chronic kidney disease [Unknown]
  - Coronary artery stenosis [Unknown]
  - Hypertension [Unknown]
  - Atrial fibrillation [Unknown]
